FAERS Safety Report 10574884 (Version 1)
Quarter: 2014Q4

REPORT INFORMATION
  Report Type: Spontaneous
  Country: GB (occurrence: GB)
  Receive Date: 20141110
  Receipt Date: 20141110
  Transmission Date: 20150529
  Serious: Yes (Other)
  Sender: FDA-Public Use
  Company Number: PHHY2014GB143759

PATIENT
  Age: 53 Year
  Sex: Female
  Weight: 89.5 kg

DRUGS (2)
  1. ERYTHROMYCIN. [Concomitant]
     Active Substance: ERYTHROMYCIN
     Indication: TOOTHACHE
  2. METRONIDAZOLE. [Suspect]
     Active Substance: METRONIDAZOLE
     Indication: TOOTHACHE
     Dosage: 200 MG, TID
     Dates: start: 20141004, end: 20141011

REACTIONS (11)
  - Hypoaesthesia [Unknown]
  - Rash macular [Unknown]
  - Eye pain [Not Recovered/Not Resolved]
  - Facial pain [Unknown]
  - Lip pain [Unknown]
  - Oropharyngeal pain [Not Recovered/Not Resolved]
  - Headache [Not Recovered/Not Resolved]
  - Poor quality sleep [Not Recovered/Not Resolved]
  - Ear infection [Not Recovered/Not Resolved]
  - Musculoskeletal stiffness [Not Recovered/Not Resolved]
  - Pruritus [Unknown]

NARRATIVE: CASE EVENT DATE: 20141020
